FAERS Safety Report 15096825 (Version 2)
Quarter: 2018Q4

REPORT INFORMATION
  Report Type: Spontaneous
  Country: US (occurrence: US)
  Receive Date: 20180702
  Receipt Date: 20181022
  Transmission Date: 20190204
  Serious: Yes (Other)
  Sender: FDA-Public Use
  Company Number: US-BAYER-2018-119228

PATIENT
  Age: 21 Year
  Sex: Female

DRUGS (1)
  1. MIRENA [Suspect]
     Active Substance: LEVONORGESTREL
     Indication: CONTRACEPTION
     Dosage: 20 MCG/24HR, CONT
     Route: 015
     Dates: start: 20180430, end: 20180621

REACTIONS (6)
  - Panic reaction [Recovered/Resolved]
  - Hypoaesthesia [Recovered/Resolved]
  - Hemiparaesthesia [Recovered/Resolved]
  - Paraesthesia [Recovered/Resolved]
  - Limb discomfort [Recovered/Resolved]
  - Discomfort [Recovered/Resolved]
